FAERS Safety Report 7865652-2 (Version None)
Quarter: 2011Q4

REPORT INFORMATION
  Report Type: 
  Country: None (occurrence: None)
  Receive Date: 20111028
  Receipt Date: 20110131
  Transmission Date: 20120403
  Serious: No
  Sender: FDA-Public Use
  Company Number: US-GLAXOSMITHKLINE-A0910702A

PATIENT
  Age: 55 Year
  Sex: Female

DRUGS (10)
  1. OMEPRAZOLE [Concomitant]
  2. ALPRAZOLAM [Concomitant]
  3. LISINOPRIL [Concomitant]
  4. NYSTATIN [Concomitant]
  5. WATER PILL [Concomitant]
  6. BENTYL [Concomitant]
  7. ZOLOFT [Concomitant]
  8. VICODIN [Concomitant]
  9. VENTOLIN [Suspect]
     Indication: MULTIPLE ALLERGIES
     Dosage: 2PUFF PER DAY
     Route: 055
  10. ADVAIR DISKUS 100/50 [Suspect]
     Indication: MULTIPLE ALLERGIES
     Dosage: 1PUFF TWICE PER DAY
     Route: 055

REACTIONS (5)
  - DYSPHONIA [None]
  - CANDIDIASIS [None]
  - BIOPSY PHARYNX [None]
  - EAR INFECTION [None]
  - EAR DISORDER [None]
